FAERS Safety Report 10466325 (Version 1)
Quarter: 2014Q3

REPORT INFORMATION
  Report Type: Spontaneous
  Country: US (occurrence: None)
  Receive Date: 20140919
  Receipt Date: 20140919
  Transmission Date: 20150326
  Serious: No
  Sender: FDA-Public Use
  Company Number: None

PATIENT
  Age: 25 Year
  Sex: Female

DRUGS (5)
  1. PROPANOLOL [Concomitant]
     Active Substance: PROPRANOLOL HYDROCHLORIDE
  2. VAYARIN [Concomitant]
  3. VYVANSE [Suspect]
     Active Substance: LISDEXAMFETAMINE DIMESYLATE
     Route: 048
  4. ADDERALL [Concomitant]
     Active Substance: AMPHETAMINE ASPARTATE\AMPHETAMINE SULFATE\DEXTROAMPHETAMINE SACCHARATE\DEXTROAMPHETAMINE SULFATE
  5. CONCERTA [Concomitant]
     Active Substance: METHYLPHENIDATE HYDROCHLORIDE

REACTIONS (18)
  - Paraesthesia [None]
  - Sensory disturbance [None]
  - Syncope [None]
  - Hypertension [None]
  - Heart rate increased [None]
  - Hypoaesthesia [None]
  - Decreased appetite [None]
  - Headache [None]
  - Feeling abnormal [None]
  - Anxiety [None]
  - Visual impairment [None]
  - Dizziness [None]
  - Weight decreased [None]
  - Pain [None]
  - Chest pain [None]
  - Rash [None]
  - Dry mouth [None]
  - Nervousness [None]

NARRATIVE: CASE EVENT DATE: 20131102
